FAERS Safety Report 10244198 (Version 1)
Quarter: 2014Q1

REPORT INFORMATION
  Report Type: Spontaneous
  Country: US (occurrence: None)
  Receive Date: 20140306
  Receipt Date: 20140306
  Transmission Date: 20141002
  Serious: Yes (Other)
  Sender: FDA-Public Use
  Company Number: 163-21880-13052912

PATIENT
  Age: 85 Year
  Sex: Female

DRUGS (11)
  1. REVLIMID (LENALIDOMIDE) (10 MILLIGRAM, CAPSULES) [Suspect]
     Indication: MYELODYSPLASTIC SYNDROME
     Dosage: 10 MG, 14 IN 21 D, PO
     Route: 048
     Dates: start: 20130424
  2. CALCIUM CITRATE (CALCIUM CITRATE) [Concomitant]
  3. NAMENDA (MEMANTINE HYDROCHLORIDE) [Concomitant]
  4. MVI (MVI [Concomitant]
  5. PRILOSEC (OMEPRAZOLE) [Concomitant]
  6. CITALOPRAM (CITALOPRAM) [Concomitant]
  7. SIMVASTATIN (SIMVASTATIN) [Concomitant]
  8. RIVASTIGMINE (RIVASTIGMINE) [Concomitant]
  9. LEVOTHYROXINE (LEVOTHYROXINE) [Concomitant]
  10. OXYBUTYNIN (OXYBUTYNIN) [Concomitant]
  11. BLOOD (BLOOD AND RELATED PRODUCTS) [Concomitant]

REACTIONS (4)
  - Constipation [None]
  - Dyspnoea [None]
  - Fatigue [None]
  - Joint swelling [None]
